FAERS Safety Report 24714140 (Version 1)
Quarter: 2024Q4

REPORT INFORMATION
  Report Type: Spontaneous
  Country: US (occurrence: US)
  Receive Date: 20241209
  Receipt Date: 20241209
  Transmission Date: 20250115
  Serious: No
  Sender: REGENERON
  Company Number: US-REGENERON PHARMACEUTICALS, INC.-2024-142036

PATIENT
  Sex: Male

DRUGS (2)
  1. EYLEA [Suspect]
     Active Substance: AFLIBERCEPT
     Indication: Neovascular age-related macular degeneration
     Dosage: 2 MG, EVERY 5 WEEKS, LEFT EYE, FORMULATION: PFS (GERRESHEIMER)
     Dates: start: 2022, end: 2023
  2. EYLEA [Suspect]
     Active Substance: AFLIBERCEPT
     Dosage: 2 MG, EVERY 8 WEEKS, LEFT EYE, FORMULATION: PFS (GERRESHEIMER)
     Dates: start: 202310, end: 20240606

REACTIONS (1)
  - Drug effect less than expected [Unknown]
